FAERS Safety Report 24065103 (Version 1)
Quarter: 2024Q3

REPORT INFORMATION
  Report Type: Spontaneous
  Country: FR (occurrence: FR)
  Receive Date: 20240709
  Receipt Date: 20240709
  Transmission Date: 20241017
  Serious: Yes (Hospitalization, Other)
  Sender: PFIZER
  Company Number: None

PATIENT
  Age: 47 Year
  Sex: Female
  Weight: 51.1 kg

DRUGS (6)
  1. TUKYSA [Suspect]
     Active Substance: TUCATINIB
     Indication: Breast cancer metastatic
     Dosage: 600 MG, 1X/DAY
     Route: 048
     Dates: start: 20231208, end: 20240122
  2. PANTOPRAZOLE [Suspect]
     Active Substance: PANTOPRAZOLE
     Dosage: 40 MG, 1X/DAY
     Route: 048
  3. HERCEPTIN [Suspect]
     Active Substance: TRASTUZUMAB
     Indication: Breast cancer metastatic
     Dosage: 600 MG
     Route: 058
     Dates: start: 20231226, end: 20231226
  4. XELODA [Suspect]
     Active Substance: CAPECITABINE
     Indication: Breast cancer metastatic
     Dosage: 2600 MG, 1X/DAY
     Route: 048
     Dates: start: 20231208, end: 20240114
  5. MORPHINE [Suspect]
     Active Substance: MORPHINE
     Indication: Pain
     Dosage: 0.4 MG, Q1HR
     Route: 042
  6. LOVENOX [Suspect]
     Active Substance: ENOXAPARIN SODIUM
     Dosage: 1 DF, 1X/DAY
     Route: 058

REACTIONS (1)
  - Hypokalaemia [Recovering/Resolving]

NARRATIVE: CASE EVENT DATE: 20231201
